FAERS Safety Report 13210855 (Version 1)
Quarter: 2017Q1

REPORT INFORMATION
  Report Type: Spontaneous
  Country: US (occurrence: US)
  Receive Date: 20170209
  Receipt Date: 20170209
  Transmission Date: 20170428
  Serious: Yes (Hospitalization, Disabling, Other)
  Sender: FDA-Public Use
  Company Number: US-ABBVIE-17P-163-1867465-00

PATIENT
  Sex: Female

DRUGS (1)
  1. LUPRON DEPOT-PED [Suspect]
     Active Substance: LEUPROLIDE ACETATE
     Indication: PRECOCIOUS PUBERTY
     Route: 058

REACTIONS (10)
  - Depression [Unknown]
  - Suicidal ideation [Unknown]
  - Osteoporosis [Unknown]
  - Blood disorder [Unknown]
  - Spinal fracture [Unknown]
  - Muscular weakness [Unknown]
  - Seizure [Unknown]
  - Bone pain [Unknown]
  - Fatigue [Unknown]
  - Myalgia [Unknown]
